FAERS Safety Report 24894769 (Version 1)
Quarter: 2025Q1

REPORT INFORMATION
  Report Type: Report from Study
  Country: US (occurrence: US)
  Receive Date: 20250128
  Receipt Date: 20250128
  Transmission Date: 20250409
  Serious: Yes (Other)
  Sender: JOHNSON AND JOHNSON
  Company Number: US-JNJFOC-20250151582

PATIENT

DRUGS (4)
  1. TECLISTAMAB [Suspect]
     Active Substance: TECLISTAMAB
     Indication: Plasma cell myeloma refractory
     Route: 058
  2. TECLISTAMAB [Suspect]
     Active Substance: TECLISTAMAB
     Route: 058
  3. TECLISTAMAB [Suspect]
     Active Substance: TECLISTAMAB
     Route: 058
  4. TECLISTAMAB [Suspect]
     Active Substance: TECLISTAMAB
     Route: 058

REACTIONS (8)
  - Neutropenia [Unknown]
  - Blood immunoglobulin G decreased [Unknown]
  - Lymphopenia [Unknown]
  - Fatigue [Unknown]
  - Infection [Unknown]
  - Headache [Unknown]
  - Injection site reaction [Unknown]
  - Hypotension [Unknown]
